FAERS Safety Report 9563815 (Version 1)
Quarter: 2013Q3

REPORT INFORMATION
  Report Type: Spontaneous
  Country: US (occurrence: None)
  Receive Date: 20130926
  Receipt Date: 20130926
  Transmission Date: 20140515
  Serious: Yes (Disabling, Other)
  Sender: FDA-Public Use
  Company Number: None

PATIENT
  Age: 44 Year
  Sex: Female
  Weight: 61.24 kg

DRUGS (1)
  1. OXYCONTIN [Suspect]
     Dosage: ONE PILL
     Route: 048
     Dates: start: 20130518, end: 20130919

REACTIONS (11)
  - Drug withdrawal syndrome [None]
  - Fatigue [None]
  - Bone pain [None]
  - Myalgia [None]
  - Yawning [None]
  - Nausea [None]
  - Vomiting [None]
  - Diarrhoea [None]
  - Anxiety [None]
  - Rhinorrhoea [None]
  - Lacrimation increased [None]
